FAERS Safety Report 14035644 (Version 1)
Quarter: 2017Q4

REPORT INFORMATION
  Report Type: Spontaneous
  Country: US (occurrence: US)
  Receive Date: 20171003
  Receipt Date: 20171003
  Transmission Date: 20180321
  Serious: Yes (Congenital Anomaly)
  Sender: FDA-Public Use
  Company Number: US-SA-2017SA178779

PATIENT
  Age: 10 Month
  Sex: Male

DRUGS (1)
  1. AUBAGIO [Suspect]
     Active Substance: TERIFLUNOMIDE
     Indication: EXPOSURE VIA FATHER
     Route: 064

REACTIONS (2)
  - Nystagmus [Not Recovered/Not Resolved]
  - Exposure via father [Unknown]
